FAERS Safety Report 10522160 (Version 1)
Quarter: 2014Q4

REPORT INFORMATION
  Report Type: Spontaneous
  Country: US (occurrence: None)
  Receive Date: 20141014
  Receipt Date: 20141014
  Transmission Date: 20150528
  Serious: Yes (Hospitalization)
  Sender: FDA-Public Use
  Company Number: None

PATIENT
  Age: 37 Year
  Sex: Male
  Weight: 101.8 kg

DRUGS (2)
  1. PEGYLATED INTERFERON NOS [Suspect]
     Active Substance: PEGINTERFERON ALFA-2A OR PEGINTERFERON ALFA-2B OR PEGINTERFERON BETA-1A OR PEGINTERFERON LAMBDA-1A
     Indication: HEPATITIS C
     Dosage: 180 MCG, QWEEK, IM
     Route: 030
     Dates: start: 20120913
  2. RIBAVIRIN. [Suspect]
     Active Substance: RIBAVIRIN
     Indication: HEPATITIS C
     Dosage: 200 MG, EVERY DAY, PO
     Route: 048
     Dates: start: 20121108

REACTIONS (5)
  - Diabetic ketoacidosis [None]
  - Diabetes mellitus [None]
  - Blood triglycerides abnormal [None]
  - Hepatic enzyme increased [None]
  - Hyperglycaemia [None]

NARRATIVE: CASE EVENT DATE: 20121101
